FAERS Safety Report 20916572 (Version 1)
Quarter: 2022Q2

REPORT INFORMATION
  Report Type: Spontaneous
  Country: CA (occurrence: None)
  Receive Date: 20220605
  Receipt Date: 20220605
  Transmission Date: 20220721
  Serious: Yes (Other)
  Sender: FDA-Public Use
  Company Number: CA-ROCHE-3111236

PATIENT
  Age: 59 Year
  Sex: Female

DRUGS (10)
  1. ACTEMRA [Suspect]
     Active Substance: TOCILIZUMAB
     Indication: Rheumatoid arthritis
     Route: 058
  2. ACTEMRA [Suspect]
     Active Substance: TOCILIZUMAB
     Route: 058
  3. COVID-19 VACCINE NOS [Suspect]
     Active Substance: COVID-19 VACCINE NOS
     Indication: COVID-19 immunisation
     Route: 030
  4. ARAVA [Concomitant]
     Active Substance: LEFLUNOMIDE
  5. COLACE [Concomitant]
     Active Substance: DOCUSATE SODIUM
  6. IRON [Concomitant]
     Active Substance: IRON
  7. NAPROXEN [Concomitant]
     Active Substance: NAPROXEN
     Route: 065
  8. PANTOPRAZOLE [Concomitant]
     Active Substance: PANTOPRAZOLE
  9. PREDNISONE [Concomitant]
     Active Substance: PREDNISONE
  10. TYLENOL [Concomitant]
     Active Substance: ACETAMINOPHEN

REACTIONS (5)
  - Arthralgia [Recovered/Resolved]
  - Joint swelling [Recovered/Resolved]
  - Mean cell haemoglobin decreased [Recovered/Resolved]
  - Mean cell volume decreased [Recovered/Resolved]
  - Renal impairment [Recovered/Resolved]
